FAERS Safety Report 15519199 (Version 1)
Quarter: 2018Q4

REPORT INFORMATION
  Report Type: Report from Study
  Country: US (occurrence: US)
  Receive Date: 20181017
  Receipt Date: 20181017
  Transmission Date: 20190205
  Serious: Yes (Hospitalization)
  Sender: FDA-Public Use
  Company Number: US-ALLERGAN-1846597US

PATIENT
  Sex: Female

DRUGS (1)
  1. ELUXADOLINE 100MG TAB (11307X) [Suspect]
     Active Substance: ELUXADOLINE
     Indication: IRRITABLE BOWEL SYNDROME
     Dosage: 100 MG, BID
     Dates: start: 20180810

REACTIONS (1)
  - Pancreatic disorder [Unknown]
